FAERS Safety Report 5139320-4 (Version None)
Quarter: 2006Q4

REPORT INFORMATION
  Report Type: 
  Country: None (occurrence: None)
  Receive Date: 20061024
  Receipt Date: 20061020
  Transmission Date: 20070319
  Serious: No
  Sender: FDA-Public Use
  Company Number: 06H-163-0310631-00

PATIENT
  Age: 69 Year
  Sex: Male

DRUGS (2)
  1. SODIUM CHLORIDE 0.9% [Suspect]
     Indication: MEDICATION DILUTION
     Dosage: INTRAVENOUS
     Route: 042
     Dates: start: 20060801
  2. CHEMOTHERAPY DRUG [Suspect]
     Indication: NEOPLASM MALIGNANT
     Dosage: INTRAVENOUS
     Route: 042
     Dates: start: 20060801

REACTIONS (2)
  - INFUSION RELATED REACTION [None]
  - STAPHYLOCOCCAL INFECTION [None]
